FAERS Safety Report 25055510 (Version 1)
Quarter: 2025Q1

REPORT INFORMATION
  Report Type: Spontaneous
  Country: US (occurrence: US)
  Receive Date: 20250308
  Receipt Date: 20250308
  Transmission Date: 20250408
  Serious: Yes (Other)
  Sender: AMGEN
  Company Number: US-AMGEN-USASP2025044824

PATIENT
  Sex: Female

DRUGS (4)
  1. NEULASTA [Suspect]
     Active Substance: PEGFILGRASTIM
     Indication: Invasive ductal breast carcinoma
     Route: 065
  2. PREDNISONE [Concomitant]
     Active Substance: PREDNISONE
  3. UNSPECIFIED INGREDIENT [Concomitant]
     Active Substance: UNSPECIFIED INGREDIENT
  4. BENADRYL [Concomitant]
     Active Substance: DIPHENHYDRAMINE HYDROCHLORIDE
     Route: 040

REACTIONS (13)
  - Atrial fibrillation [Unknown]
  - Arrhythmia [Unknown]
  - Drug hypersensitivity [Unknown]
  - White blood cell count increased [Unknown]
  - Abdominal pain upper [Recovering/Resolving]
  - Diarrhoea [Unknown]
  - Abdominal discomfort [Unknown]
  - Nausea [Unknown]
  - Visual impairment [Unknown]
  - Nerve compression [Unknown]
  - Taste disorder [Unknown]
  - Ventricular extrasystoles [Unknown]
  - Chest pain [Unknown]
